FAERS Safety Report 7064783-7 (Version None)
Quarter: 2010Q4

REPORT INFORMATION
  Report Type: 
  Country: None (occurrence: None)
  Receive Date: 20101027
  Receipt Date: 19870105
  Transmission Date: 20110411
  Serious: Yes (Death, Life-Threatening, Hospitalization)
  Sender: FDA-Public Use
  Company Number: US-ROCHE-870200036001

PATIENT
  Age: 73 Year
  Sex: Male

DRUGS (1)
  1. VERSED [Suspect]
     Indication: SEDATION
     Route: 042
     Dates: start: 19861208, end: 19861208

REACTIONS (4)
  - CREST SYNDROME [None]
  - HEART RATE INCREASED [None]
  - PROCEDURAL HYPOTENSION [None]
  - RESPIRATORY ARREST [None]
